FAERS Safety Report 18745369 (Version 2)
Quarter: 2021Q1

REPORT INFORMATION
  Report Type: Report from Study
  Country: FR (occurrence: FR)
  Receive Date: 20210115
  Receipt Date: 20210212
  Transmission Date: 20210419
  Serious: Yes (Hospitalization)
  Sender: FDA-Public Use
  Company Number: FR-ROCHE-2746552

PATIENT
  Age: 39 Year
  Sex: Female
  Weight: 44 kg

DRUGS (3)
  1. ATEZOLIZUMAB. [Suspect]
     Active Substance: ATEZOLIZUMAB
     Indication: CERVIX CARCINOMA
     Dosage: START DATE OF MOST RECENT DOSE OF STUDY DRUG PRIOR TO SAE: 16/DEC/2020
     Route: 042
     Dates: start: 20201125
  2. MTIG 7192A [Suspect]
     Active Substance: TIRAGOLUMAB
     Indication: CERVIX CARCINOMA
     Dosage: START DATE OF MOST RECENT DOSE OF STUDY DRUG PRIOR TO AE: 16/DEC/2020
     Route: 042
     Dates: start: 20201125
  3. NEOMERCAZOLE [Concomitant]
     Active Substance: CARBIMAZOLE
     Indication: HYPERTHYROIDISM
     Dates: start: 20210119

REACTIONS (1)
  - Lipase increased [Unknown]

NARRATIVE: CASE EVENT DATE: 20210106
